FAERS Safety Report 11135052 (Version 3)
Quarter: 2015Q3

REPORT INFORMATION
  Report Type: Spontaneous
  Country: US (occurrence: US)
  Receive Date: 20150525
  Receipt Date: 20150721
  Transmission Date: 20151125
  Serious: Yes (Death, Other)
  Sender: FDA-Public Use
  Company Number: US-ASTRAZENECA-2014SE57625

PATIENT
  Age: 987 Month
  Sex: Male
  Weight: 74.8 kg

DRUGS (22)
  1. LIPITOR [Concomitant]
     Active Substance: ATORVASTATIN CALCIUM
     Dates: start: 2001
  2. AVODART [Concomitant]
     Active Substance: DUTASTERIDE
     Dates: start: 200910
  3. BYETTA [Suspect]
     Active Substance: EXENATIDE
     Indication: TYPE 2 DIABETES MELLITUS
     Route: 065
     Dates: start: 20101123, end: 20101223
  4. METFORMIN [Concomitant]
     Active Substance: METFORMIN HYDROCHLORIDE
     Indication: TYPE 2 DIABETES MELLITUS
     Route: 048
  5. ACTOS [Concomitant]
     Active Substance: PIOGLITAZONE HYDROCHLORIDE
     Dates: start: 200910, end: 201108
  6. VICTOZA [Concomitant]
     Active Substance: LIRAGLUTIDE
     Dosage: 6 MG/ML
     Dates: start: 20101124
  7. OXALIPLATIN. [Concomitant]
     Active Substance: OXALIPLATIN
  8. TARCEVA [Concomitant]
     Active Substance: ERLOTINIB HYDROCHLORIDE
  9. BYETTA [Suspect]
     Active Substance: EXENATIDE
     Indication: TYPE 2 DIABETES MELLITUS
     Route: 065
     Dates: start: 20101124
  10. JANUVIA [Suspect]
     Active Substance: SITAGLIPTIN PHOSPHATE
     Indication: TYPE 2 DIABETES MELLITUS
     Route: 065
     Dates: start: 20091015
  11. BYETTA [Suspect]
     Active Substance: EXENATIDE
     Indication: TYPE 2 DIABETES MELLITUS
     Route: 065
     Dates: start: 20101123, end: 20110908
  12. WARFARIN [Concomitant]
     Active Substance: WARFARIN
  13. 5-FU [Concomitant]
     Active Substance: FLUOROURACIL
  14. LOTRISONE [Concomitant]
     Active Substance: BETAMETHASONE DIPROPIONATE\CLOTRIMAZOLE
     Indication: RASH
  15. BYETTA [Suspect]
     Active Substance: EXENATIDE
     Indication: TYPE 2 DIABETES MELLITUS
     Route: 065
     Dates: start: 20101224, end: 20110908
  16. JANUVIA [Suspect]
     Active Substance: SITAGLIPTIN PHOSPHATE
     Indication: TYPE 2 DIABETES MELLITUS
     Route: 065
     Dates: start: 201004, end: 201011
  17. JANUVIA [Suspect]
     Active Substance: SITAGLIPTIN PHOSPHATE
     Indication: TYPE 2 DIABETES MELLITUS
     Route: 065
     Dates: start: 20101123, end: 20110908
  18. PRANDIN [Concomitant]
     Active Substance: REPAGLINIDE
     Indication: TYPE 2 DIABETES MELLITUS
     Route: 048
  19. ADVAIR HFA [Concomitant]
     Active Substance: FLUTICASONE PROPIONATE\SALMETEROL XINAFOATE
     Dates: start: 2000
  20. GEMCITABINE [Concomitant]
     Active Substance: GEMCITABINE\GEMCITABINE HYDROCHLORIDE
  21. GLIPIZIDE. [Concomitant]
     Active Substance: GLIPIZIDE
     Route: 048
  22. FLOVENT [Concomitant]
     Active Substance: FLUTICASONE PROPIONATE
     Dates: start: 2000

REACTIONS (8)
  - Pancreatic carcinoma metastatic [Fatal]
  - Weight decreased [Unknown]
  - Benign prostatic hyperplasia [Unknown]
  - Metastases to lymph nodes [Unknown]
  - Cholelithiasis [Unknown]
  - Hernia [Unknown]
  - Metastases to peritoneum [Unknown]
  - Hepatic cyst [Unknown]

NARRATIVE: CASE EVENT DATE: 201203
